FAERS Safety Report 6546881-7 (Version None)
Quarter: 2010Q1

REPORT INFORMATION
  Report Type: 
  Country: None (occurrence: None)
  Receive Date: 20100122
  Receipt Date: 20100114
  Transmission Date: 20100710
  Serious: Yes (Hospitalization)
  Sender: FDA-Public Use
  Company Number: SE-ASTRAZENECA-2010SE01662

PATIENT
  Age: 83 Year
  Sex: Female

DRUGS (9)
  1. FELODIPINE [Suspect]
     Indication: ATRIAL FIBRILLATION
     Dosage: DAILY
     Route: 048
     Dates: start: 20090129
  2. DIGOXIN [Suspect]
     Indication: ATRIAL FIBRILLATION
     Dosage: DAILY
     Route: 048
     Dates: start: 20090129
  3. SOTALOL [Suspect]
     Indication: ATRIAL FIBRILLATION
     Route: 048
     Dates: start: 20090129
  4. MESTINON [Concomitant]
  5. TRYPTIZOL [Concomitant]
  6. LEVOTHYROXINE SODIUM [Concomitant]
  7. PREDNISOLON [Concomitant]
  8. HUMULIN MIX 30/70 [Concomitant]
  9. NOVORAPID [Concomitant]

REACTIONS (1)
  - BRADYCARDIA [None]
